FAERS Safety Report 9908723 (Version 1)
Quarter: 2014Q1

REPORT INFORMATION
  Report Type: Spontaneous
  Country: US (occurrence: None)
  Receive Date: 20140212
  Receipt Date: 20140212
  Transmission Date: 20141002
  Serious: No
  Sender: FDA-Public Use
  Company Number: None

PATIENT
  Age: 71 Year
  Sex: Female

DRUGS (1)
  1. FORTEO [Suspect]
     Indication: ILL-DEFINED DISORDER
     Route: 058
     Dates: start: 20131029

REACTIONS (5)
  - Asthenia [None]
  - Fatigue [None]
  - Weight decreased [None]
  - Tremor [None]
  - Parkinsonism [None]
